FAERS Safety Report 9066440 (Version 2)
Quarter: 2013Q2

REPORT INFORMATION
  Report Type: Report from Study
  Country: GB (occurrence: GB)
  Receive Date: 20130214
  Receipt Date: 20130411
  Transmission Date: 20140414
  Serious: Yes (Other)
  Sender: FDA-Public Use
  Company Number: GB-ROCHE-1188995

PATIENT
  Sex: Male

DRUGS (2)
  1. RITUXIMAB [Suspect]
     Indication: RHEUMATOID ARTHRITIS
     Route: 065
     Dates: start: 20101018
  2. METHOTREXATE [Concomitant]
     Route: 065
     Dates: start: 201011

REACTIONS (1)
  - Skin cancer [Unknown]
